FAERS Safety Report 7077505-0 (Version None)
Quarter: 2010Q4

REPORT INFORMATION
  Report Type: 
  Country: None (occurrence: None)
  Receive Date: 20101101
  Receipt Date: 20101020
  Transmission Date: 20110411
  Serious: Yes (Death, Other)
  Sender: FDA-Public Use
  Company Number: US-CELGENEUS-163-20785-10101048

PATIENT
  Sex: Male

DRUGS (2)
  1. THALOMID [Suspect]
     Indication: MULTIPLE MYELOMA
     Route: 048
     Dates: start: 20060901, end: 20090501
  2. THALOMID [Suspect]
     Route: 048
     Dates: start: 20090601, end: 20100101

REACTIONS (2)
  - MYOCARDIAL INFARCTION [None]
  - RESPIRATORY FAILURE [None]
